FAERS Safety Report 6852831-6 (Version None)
Quarter: 2010Q3

REPORT INFORMATION
  Report Type: 
  Country: None (occurrence: None)
  Receive Date: 20100717
  Receipt Date: 20071120
  Transmission Date: 20110219
  Serious: No
  Sender: FDA-Public Use
  Company Number: US-PFIZER INC-2007099654

PATIENT
  Sex: Male
  Weight: 111.36 kg

DRUGS (3)
  1. CHANTIX [Suspect]
     Indication: SMOKING CESSATION THERAPY
     Dates: start: 20070101
  2. ATENOLOL [Concomitant]
  3. TRIAMTERENE [Concomitant]

REACTIONS (6)
  - ABNORMAL DREAMS [None]
  - ARTHRALGIA [None]
  - FEELING ABNORMAL [None]
  - INITIAL INSOMNIA [None]
  - INSOMNIA [None]
  - TOOTHACHE [None]
